FAERS Safety Report 13803971 (Version 1)
Quarter: 2017Q3

REPORT INFORMATION
  Report Type: Spontaneous
  Country: US (occurrence: US)
  Receive Date: 20170728
  Receipt Date: 20170728
  Transmission Date: 20171127
  Serious: No
  Sender: FDA-Public Use
  Company Number: US-ASTRAZENECA-2017SE76491

PATIENT
  Sex: Male

DRUGS (1)
  1. NEXIUM 24HR [Suspect]
     Active Substance: ESOMEPRAZOLE MAGNESIUM
     Dosage: UNK, 1X/DAY (ONE EVERY DAY)
     Route: 048

REACTIONS (3)
  - Fluid retention [Unknown]
  - Faeces soft [Unknown]
  - Intentional product use issue [Unknown]
